FAERS Safety Report 25265122 (Version 3)
Quarter: 2025Q2

REPORT INFORMATION
  Report Type: Report from Study
  Country: SA (occurrence: SA)
  Receive Date: 20250502
  Receipt Date: 20250620
  Transmission Date: 20250717
  Serious: Yes (Death, Other)
  Sender: ABBVIE
  Company Number: SA-ABBVIE-6256029

PATIENT
  Age: 70 Year
  Sex: Male

DRUGS (3)
  1. CARBIDOPA\LEVODOPA [Suspect]
     Active Substance: CARBIDOPA\LEVODOPA
     Indication: Parkinson^s disease
     Route: 050
     Dates: start: 20241204, end: 20250423
  2. CARBIDOPA\LEVODOPA [Suspect]
     Active Substance: CARBIDOPA\LEVODOPA
  3. QUETIAPINE [Concomitant]
     Active Substance: QUETIAPINE
     Indication: Insomnia
     Route: 048

REACTIONS (9)
  - Death [Fatal]
  - Intestinal obstruction [Recovered/Resolved]
  - Device dislocation [Recovering/Resolving]
  - Gastrointestinal necrosis [Recovered/Resolved]
  - Haematemesis [Unknown]
  - Device kink [Unknown]
  - Device issue [Unknown]
  - Coma [Unknown]
  - Haemorrhage [Unknown]

NARRATIVE: CASE EVENT DATE: 20250101
